FAERS Safety Report 7956932-0 (Version None)
Quarter: 2011Q4

REPORT INFORMATION
  Report Type: 
  Country: None (occurrence: None)
  Receive Date: 20111205
  Receipt Date: 20111125
  Transmission Date: 20120403
  Serious: Yes (Other)
  Sender: FDA-Public Use
  Company Number: US-ASTRAZENECA-2010SE21304

PATIENT
  Sex: Female

DRUGS (4)
  1. NEXIUM [Suspect]
     Route: 048
  2. CRESTOR [Suspect]
     Route: 048
  3. SYNTHROID [Suspect]
     Route: 065
  4. LEXAPRO [Suspect]
     Route: 065

REACTIONS (7)
  - ANXIETY [None]
  - GASTROOESOPHAGEAL REFLUX DISEASE [None]
  - BREAST CANCER [None]
  - PAIN IN EXTREMITY [None]
  - MENISCUS LESION [None]
  - THYROID DISORDER [None]
  - PANIC ATTACK [None]
